FAERS Safety Report 21091430 (Version 1)
Quarter: 2022Q3

REPORT INFORMATION
  Report Type: Report from Study
  Country: FR (occurrence: None)
  Receive Date: 20220716
  Receipt Date: 20220716
  Transmission Date: 20221027
  Serious: Yes (Hospitalization)
  Sender: FDA-Public Use
  Company Number: 2021A761672

PATIENT
  Age: 36 Year
  Sex: Female
  Weight: 66 kg

DRUGS (4)
  1. DURVALUMAB [Suspect]
     Active Substance: DURVALUMAB
     Indication: Triple negative breast cancer
     Dosage: 1500 MG
     Route: 042
     Dates: start: 20210427, end: 20210914
  2. OLECLUMAB [Suspect]
     Active Substance: OLECLUMAB
     Indication: Triple negative breast cancer
     Dosage: 3000 MG
     Route: 042
     Dates: start: 20210427, end: 20210914
  3. PACLITAXEL [Suspect]
     Active Substance: PACLITAXEL
     Indication: Triple negative breast cancer
     Dosage: 81 MG Q1W
     Route: 042
     Dates: start: 20210427, end: 20210713
  4. CARBOPLATIN [Suspect]
     Active Substance: CARBOPLATIN
     Indication: Triple negative breast cancer
     Dosage: 218 MG Q1W
     Route: 042
     Dates: start: 20210427, end: 20210622

REACTIONS (1)
  - Drug-induced liver injury [Recovered/Resolved]

NARRATIVE: CASE EVENT DATE: 20211004
